FAERS Safety Report 25097059 (Version 1)
Quarter: 2025Q1

REPORT INFORMATION
  Report Type: Spontaneous
  Country: CN (occurrence: CN)
  Receive Date: 20250319
  Receipt Date: 20250319
  Transmission Date: 20250408
  Serious: Yes (Hospitalization)
  Sender: BEIGENE
  Company Number: CN-BEIGENE-BGN-2025-004075

PATIENT
  Age: 66 Year
  Weight: 46 kg

DRUGS (8)
  1. TISLELIZUMAB [Suspect]
     Active Substance: TISLELIZUMAB
     Indication: Cholangiocarcinoma
     Dosage: 200 MILLIGRAM, Q3WK
  2. TISLELIZUMAB [Suspect]
     Active Substance: TISLELIZUMAB
     Indication: Metastases to liver
     Dosage: 200 MILLIGRAM, Q3WK
     Route: 041
  3. TISLELIZUMAB [Suspect]
     Active Substance: TISLELIZUMAB
     Dosage: 200 MILLIGRAM, Q3WK
     Route: 041
  4. TISLELIZUMAB [Suspect]
     Active Substance: TISLELIZUMAB
     Dosage: 200 MILLIGRAM, Q3WK
  5. PACLITAXEL [Concomitant]
     Active Substance: PACLITAXEL
     Indication: Cholangiocarcinoma
     Dosage: 350 MILLIGRAM, Q3WK
     Route: 041
  6. PACLITAXEL [Concomitant]
     Active Substance: PACLITAXEL
     Indication: Metastases to liver
     Dosage: 350 MILLIGRAM, Q3WK
  7. CATEQUENTINIB DIHYDROCHLORIDE [Concomitant]
     Active Substance: CATEQUENTINIB DIHYDROCHLORIDE
     Indication: Cholangiocarcinoma
     Route: 048
  8. CATEQUENTINIB DIHYDROCHLORIDE [Concomitant]
     Active Substance: CATEQUENTINIB DIHYDROCHLORIDE
     Indication: Metastases to liver

REACTIONS (4)
  - Chills [Recovering/Resolving]
  - Diarrhoea [Recovering/Resolving]
  - Platelet count decreased [Recovering/Resolving]
  - Abdominal pain upper [Unknown]
